FAERS Safety Report 4901231-4 (Version None)
Quarter: 2006Q1

REPORT INFORMATION
  Report Type: 
  Country: None (occurrence: None)
  Receive Date: 20060202
  Receipt Date: 20051118
  Transmission Date: 20060701
  Serious: Yes (Other)
  Sender: FDA-Public Use
  Company Number: 0510-567

PATIENT
  Age: 5 Year
  Sex: Female
  Weight: 18.1439 kg

DRUGS (3)
  1. ALBUTEROL SULATE [Suspect]
     Indication: ASTHMA
     Dosage: 1 DOSE TID-QID
     Dates: start: 20020101, end: 20040501
  2. PULMICORT [Concomitant]
  3. SINGULAIR [Concomitant]

REACTIONS (2)
  - ENAMEL ANOMALY [None]
  - TOOTH DISORDER [None]
